FAERS Safety Report 10644280 (Version 2)
Quarter: 2015Q1

REPORT INFORMATION
  Report Type: Spontaneous
  Country: US (occurrence: US)
  Receive Date: 20141210
  Receipt Date: 20150120
  Transmission Date: 20150720
  Serious: Yes (Hospitalization, Other)
  Sender: FDA-Public Use
  Company Number: US-TAKEDA-2014TUS013156

PATIENT
  Age: 68 Year
  Sex: Female
  Weight: 54.42 kg

DRUGS (8)
  1. ENTYVIO [Suspect]
     Active Substance: VEDOLIZUMAB
     Indication: CROHN^S DISEASE
     Dosage: 300 MG, UNK
     Route: 042
     Dates: start: 20140729, end: 20141124
  2. ERTAPENEM [Concomitant]
     Active Substance: ERTAPENEM
     Indication: INFECTION
     Dosage: UNK
     Route: 042
     Dates: start: 200411
  3. TPN WITH LIPIDS AND MVI [Concomitant]
     Dosage: UNK
     Route: 042
  4. COLESTIPOL [Concomitant]
     Active Substance: COLESTIPOL
     Dosage: UNK
     Dates: end: 20141104
  5. VANCOMYCIN [Concomitant]
     Active Substance: VANCOMYCIN
     Indication: DEVICE RELATED INFECTION
     Dosage: UNK, 2 WEEKS
     Route: 042
  6. PROTONIX [Concomitant]
     Active Substance: PANTOPRAZOLE SODIUM
     Dosage: UNK
     Dates: end: 20141104
  7. AZATHIOPRINE. [Concomitant]
     Active Substance: AZATHIOPRINE
     Dosage: 100 MG, QD
  8. INVANZ [Concomitant]
     Active Substance: ERTAPENEM SODIUM
     Indication: INFECTION
     Dosage: UNK
     Route: 042
     Dates: start: 201411

REACTIONS (2)
  - Device related infection [Unknown]
  - Crohn^s disease [Unknown]

NARRATIVE: CASE EVENT DATE: 201408
